FAERS Safety Report 14407458 (Version 1)
Quarter: 2018Q1

REPORT INFORMATION
  Report Type: Spontaneous
  Country: DE (occurrence: DE)
  Receive Date: 20180118
  Receipt Date: 20180118
  Transmission Date: 20180509
  Serious: Yes (Other)
  Sender: FDA-Public Use
  Company Number: PHHY2018DE005001

PATIENT
  Sex: Male

DRUGS (1)
  1. OXAZEPAM HEXAL [Suspect]
     Active Substance: OXAZEPAM
     Indication: PRODUCT USED FOR UNKNOWN INDICATION
     Dosage: 10 MG PRN (OCCASIONAL)
     Route: 048

REACTIONS (1)
  - Glaucoma [Unknown]
